FAERS Safety Report 9066268 (Version 1)
Quarter: 2013Q1

REPORT INFORMATION
  Report Type: Spontaneous
  Country: US (occurrence: US)
  Receive Date: 20130131
  Receipt Date: 20130131
  Transmission Date: 20140127
  Serious: No
  Sender: FDA-Public Use
  Company Number: US-ABBOTT-12P-163-1013180-00

PATIENT
  Age: 45 None
  Sex: Female

DRUGS (8)
  1. HUMIRA [Suspect]
     Indication: RHEUMATOID ARTHRITIS
     Dates: start: 201108
  2. EVOXAC [Concomitant]
     Indication: APTYALISM
  3. SYNTHROID [Concomitant]
     Indication: HYPOTHYROIDISM
  4. DICLOFENAC SODIUM [Concomitant]
     Indication: RHEUMATOID ARTHRITIS
  5. TOPAMAX [Concomitant]
     Indication: MIGRAINE PROPHYLAXIS
  6. VITAMIN D (NON-ABBOTT) [Concomitant]
     Indication: VITAMIN SUPPLEMENTATION
  7. MULTIVITAMIN (NON-ABBOTT) [Concomitant]
     Indication: VITAMIN SUPPLEMENTATION
  8. FISH OIL [Concomitant]
     Indication: SUPPLEMENTATION THERAPY

REACTIONS (8)
  - Medication error [Recovered/Resolved]
  - Drug ineffective [Not Recovered/Not Resolved]
  - Rheumatoid arthritis [Not Recovered/Not Resolved]
  - Sinus headache [Recovered/Resolved]
  - Malaise [Recovered/Resolved]
  - Cough [Recovered/Resolved]
  - Bronchitis [Recovered/Resolved]
  - Urinary tract infection [Recovered/Resolved]
